FAERS Safety Report 6410836-3 (Version None)
Quarter: 2009Q4

REPORT INFORMATION
  Report Type: 
  Country: None (occurrence: None)
  Receive Date: 20091022
  Receipt Date: 20091013
  Transmission Date: 20100525
  Serious: Yes (Hospitalization)
  Sender: FDA-Public Use
  Company Number: CA-ABBOTT-09P-028-0595680-00

PATIENT
  Sex: Female
  Weight: 49.94 kg

DRUGS (2)
  1. HUMIRA [Suspect]
     Indication: COLITIS ULCERATIVE
     Route: 058
     Dates: start: 20090811
  2. CORTISONE [Concomitant]
     Indication: DRUG USE FOR UNKNOWN INDICATION
     Dosage: DAILY, WEANING DOSE
     Route: 048

REACTIONS (14)
  - ABDOMINAL DISCOMFORT [None]
  - BURNING SENSATION [None]
  - COLITIS ULCERATIVE [None]
  - DISTURBANCE IN ATTENTION [None]
  - DIZZINESS [None]
  - DRY MOUTH [None]
  - FATIGUE [None]
  - LOSS OF CONSCIOUSNESS [None]
  - PARAESTHESIA [None]
  - POLLAKIURIA [None]
  - TONGUE DISCOLOURATION [None]
  - VAGINAL ODOUR [None]
  - VULVOVAGINAL PRURITUS [None]
  - WHITE BLOOD CELL COUNT DECREASED [None]
